FAERS Safety Report 18867280 (Version 1)
Quarter: 2021Q1

REPORT INFORMATION
  Report Type: Spontaneous
  Country: DE (occurrence: DE)
  Receive Date: 20210209
  Receipt Date: 20210209
  Transmission Date: 20210420
  Serious: Yes (Other)
  Sender: FDA-Public Use
  Company Number: DE-PFIZER INC-2021102465

PATIENT

DRUGS (1)
  1. CYTOTEC [Suspect]
     Active Substance: MISOPROSTOL
     Indication: LABOUR INDUCTION
     Dosage: 2 DF (TOTAL); FIRST DOSE AT 14:00 AND THE SECOND DOSE AT 17:30
     Route: 064
     Dates: start: 20201202, end: 20201202

REACTIONS (2)
  - Foetal heart rate decreased [Unknown]
  - Foetal exposure during delivery [Unknown]

NARRATIVE: CASE EVENT DATE: 20201202
